FAERS Safety Report 17237470 (Version 2)
Quarter: 2020Q1

REPORT INFORMATION
  Report Type: Report from Study
  Country: US (occurrence: US)
  Receive Date: 20200106
  Receipt Date: 20200116
  Transmission Date: 20200409
  Serious: Yes (Other)
  Sender: FDA-Public Use
  Company Number: US-EMD SERONO-9137406

PATIENT
  Age: 52 Year
  Sex: Female

DRUGS (1)
  1. MAVENCLAD [Suspect]
     Active Substance: CLADRIBINE
     Indication: MULTIPLE SCLEROSIS
     Dosage: FIRST YEAR FIRST MONTH MONTH THERAPY: TWO TABLETS (EACH OF 10 MG) ON DAYS 1 TO 5.
     Route: 048
     Dates: start: 20191213

REACTIONS (4)
  - Hypoaesthesia [Unknown]
  - White blood cell count decreased [Recovered/Resolved]
  - Headache [Unknown]
  - Neutropenia [Unknown]

NARRATIVE: CASE EVENT DATE: 201912
